FAERS Safety Report 13627234 (Version 17)
Quarter: 2022Q1

REPORT INFORMATION
  Report Type: Spontaneous
  Country: US (occurrence: US)
  Receive Date: 20170607
  Receipt Date: 20220223
  Transmission Date: 20220423
  Serious: Yes (Hospitalization, Other)
  Sender: FDA-Public Use
  Company Number: US-PFIZER INC-2017247556

PATIENT
  Age: 80 Year
  Sex: Female
  Weight: 65.32 kg

DRUGS (11)
  1. IBRANCE [Suspect]
     Active Substance: PALBOCICLIB
     Indication: Breast cancer metastatic
     Dosage: UNK
  2. IBRANCE [Suspect]
     Active Substance: PALBOCICLIB
     Dosage: 125 MG, CYCLIC (ONE CAPSULE DAILY ABOUT 6PM AFTER DINNER FOR 21 DAYS EVERY 4 WEEKS)
     Dates: start: 201611
  3. IBRANCE [Suspect]
     Active Substance: PALBOCICLIB
     Dosage: 125 MG, CYCLIC (ONE CAPSULE DAILY ABOUT 6PM AFTER DINNER FOR 21 DAYS EVERY 4 WEEKS)
     Dates: start: 201611
  4. IBRANCE [Suspect]
     Active Substance: PALBOCICLIB
     Dosage: 125 MG, 1X/DAY
     Route: 048
     Dates: start: 201611
  5. LETROZOLE [Concomitant]
     Active Substance: LETROZOLE
     Indication: Breast cancer metastatic
     Dosage: 2.5 MG, 1X/DAY (ABOUT 10: 00 AM)
     Dates: start: 201611
  6. LEXAPRO [Concomitant]
     Active Substance: ESCITALOPRAM OXALATE
     Indication: Depression
     Dosage: 10 MG, 1X/DAY
     Dates: start: 201611
  7. XANAX [Concomitant]
     Active Substance: ALPRAZOLAM
     Indication: Depression
     Dosage: 0.5 MG, 1X/DAY (BUT CAN TAKE UP TO THREE DAY)
     Dates: start: 201611
  8. OMEPRAZOLE [Concomitant]
     Active Substance: OMEPRAZOLE
     Indication: Gastrooesophageal reflux disease
     Dosage: 20 MG, DAILY
     Dates: start: 2017
  9. CALTRATE 600+D [Concomitant]
     Indication: Bone disorder
     Dosage: 1 DF, DAILY
     Dates: start: 2017
  10. ATORVASTATIN [Concomitant]
     Active Substance: ATORVASTATIN
     Indication: Blood cholesterol increased
     Dosage: 10 MG, 1X/DAY (AT BEDTIME)
  11. AMLODIPINE [Concomitant]
     Active Substance: AMLODIPINE BESYLATE
     Indication: Hypertension
     Dosage: 2.5 MG, 1X/DAY

REACTIONS (14)
  - Fall [Recovered/Resolved]
  - Pneumonia [Unknown]
  - Vertigo [Recovered/Resolved]
  - Hypoacusis [Unknown]
  - Alopecia [Not Recovered/Not Resolved]
  - Hair growth abnormal [Unknown]
  - Vertigo positional [Recovered/Resolved]
  - Full blood count abnormal [Unknown]
  - Diarrhoea [Unknown]
  - Auditory disorder [Unknown]
  - Road traffic accident [Unknown]
  - Back injury [Unknown]
  - White blood cell count decreased [Unknown]
  - Product dose omission issue [Unknown]

NARRATIVE: CASE EVENT DATE: 20170401
